FAERS Safety Report 9719746 (Version 2)
Quarter: 2013Q4

REPORT INFORMATION
  Report Type: Report from Study
  Country: FR (occurrence: FR)
  Receive Date: 20131128
  Receipt Date: 20131214
  Transmission Date: 20140711
  Serious: Yes (Hospitalization)
  Sender: FDA-Public Use
  Company Number: FR-AMGEN-FRACT2013082457

PATIENT
  Age: 81 Year
  Sex: Male
  Weight: 63 kg

DRUGS (5)
  1. PANITUMUMAB [Suspect]
     Indication: OESOPHAGEAL ADENOCARCINOMA
     Dosage: 380 MG, UNK
     Route: 042
     Dates: start: 20130320
  2. OXALIPLATIN [Concomitant]
     Indication: OESOPHAGEAL ADENOCARCINOMA
     Dosage: 150 MG, UNK
     Route: 042
     Dates: start: 20130320, end: 20130904
  3. FOLINIC ACID [Concomitant]
     Indication: OESOPHAGEAL ADENOCARCINOMA
     Dosage: 715 MG, UNK
     Route: 042
     Dates: start: 20130320, end: 20131016
  4. CRESTOR [Concomitant]
     Dosage: UNK
     Route: 048
     Dates: start: 2007
  5. ATENOLOL [Concomitant]
     Indication: HYPERTENSION
     Dosage: UNK
     Route: 048
     Dates: start: 2007

REACTIONS (1)
  - Nervous system disorder [Recovered/Resolved]
